FAERS Safety Report 4368505-X (Version None)
Quarter: 2004Q2

REPORT INFORMATION
  Report Type: 
  Country: None (occurrence: None)
  Receive Date: 20040602
  Receipt Date: 20040105
  Transmission Date: 20050107
  Serious: No
  Sender: FDA-Public Use
  Company Number: US-GLAXOSMITHKLINE-A0491310A

PATIENT
  Age: 1 Year
  Sex: Female

DRUGS (1)
  1. AUGMENTIN [Suspect]
     Indication: EAR INFECTION
     Dosage: 3.4TSP TWICE PER DAY
     Route: 048
     Dates: start: 20031222

REACTIONS (1)
  - TOOTH DISCOLOURATION [None]
